FAERS Safety Report 6461574-2 (Version None)
Quarter: 2009Q4

REPORT INFORMATION
  Report Type: 
  Country: None (occurrence: None)
  Receive Date: 20091123
  Receipt Date: 20091109
  Transmission Date: 20100525
  Serious: Yes (Hospitalization, Other)
  Sender: FDA-Public Use
  Company Number: 2009AC000054

PATIENT
  Age: 54 Year
  Sex: Female
  Weight: 150.1406 kg

DRUGS (61)
  1. DIGOXIN [Suspect]
     Indication: HEART RATE IRREGULAR
     Dosage: 0.125 MG;QD;PO
     Route: 048
  2. DIGOXIN [Suspect]
     Dosage: 0.25 MG;PO
     Route: 048
     Dates: start: 20081201
  3. INSULIN [Concomitant]
  4. CARDIZEM [Concomitant]
  5. LASIX [Concomitant]
  6. GLUCOPHAGE [Concomitant]
  7. GLYBURIDE [Concomitant]
  8. ATROVENT [Concomitant]
  9. PRILOSEC [Concomitant]
  10. VALIUM [Concomitant]
  11. PAXIL [Concomitant]
  12. AZMACORT [Concomitant]
  13. ALBUTEROL [Concomitant]
  14. INDERAL [Concomitant]
  15. TYLOX [Concomitant]
  16. SEREVENT [Concomitant]
  17. MOTRIN [Concomitant]
  18. COREG [Concomitant]
  19. COUMADIN [Concomitant]
  20. LORTAB [Concomitant]
  21. ASPIRIN [Concomitant]
  22. LISINOPRIL [Concomitant]
  23. MICRO-K [Concomitant]
  24. CARDIZEM [Concomitant]
  25. GLUCOPHAGE [Concomitant]
  26. LASIX [Concomitant]
  27. LANTUS [Concomitant]
  28. XANAX [Concomitant]
  29. LANTUS [Concomitant]
  30. XANAX [Concomitant]
  31. NEBULIZER [Concomitant]
  32. DUONEB [Concomitant]
  33. FLAGYL [Concomitant]
  34. LOVENOX [Concomitant]
  35. NEXIUM [Concomitant]
  36. POTASSIUM [Concomitant]
  37. NYSTATIN [Concomitant]
  38. DESITIN [Concomitant]
  39. CARTIXT XT [Concomitant]
  40. METFORMIN HCL [Concomitant]
  41. OXYCONTIN [Concomitant]
  42. LORTAB [Concomitant]
  43. BACTRIM DS [Concomitant]
  44. DOXYCYCLINE [Concomitant]
  45. ADVAIR DISKUS 100/50 [Concomitant]
  46. VALIUM [Concomitant]
  47. *HYDROCODONE [Concomitant]
  48. LYRICA [Concomitant]
  49. WARFARIN SODIUM [Concomitant]
  50. FUROSEMIDE [Concomitant]
  51. CARTIA XT [Concomitant]
  52. LANTUS [Concomitant]
  53. POTASSIUM CHLORIDE [Concomitant]
  54. METFORMIN HCL [Concomitant]
  55. CARVEDILOL [Concomitant]
  56. FENTANYL [Concomitant]
  57. CYCLOBENZAPRINE [Concomitant]
  58. HUMALOG [Concomitant]
  59. ALTACE [Concomitant]
  60. ASPIRIN [Concomitant]
  61. DOC-Q-LACE [Concomitant]

REACTIONS (36)
  - ANGINA PECTORIS [None]
  - ANHEDONIA [None]
  - ANXIETY [None]
  - ASTHMA [None]
  - ATRIAL FIBRILLATION [None]
  - ATRIAL FLUTTER [None]
  - BIPOLAR DISORDER [None]
  - BLOOD CHOLESTEROL INCREASED [None]
  - CARDIAC FAILURE CONGESTIVE [None]
  - CELLULITIS [None]
  - CHRONIC OBSTRUCTIVE PULMONARY DISEASE [None]
  - CLOSTRIDIUM COLITIS [None]
  - CORONARY ARTERY DISEASE [None]
  - DEEP VEIN THROMBOSIS [None]
  - DEPRESSION [None]
  - DIABETES MELLITUS INADEQUATE CONTROL [None]
  - DIABETIC ULCER [None]
  - DIARRHOEA [None]
  - ECONOMIC PROBLEM [None]
  - GASTROINTESTINAL DISORDER [None]
  - HEART RATE IRREGULAR [None]
  - HYPERTENSION [None]
  - INJURY [None]
  - INTERVERTEBRAL DISC PROTRUSION [None]
  - MYOCARDIAL INFARCTION [None]
  - NAUSEA [None]
  - NEUROPATHY PERIPHERAL [None]
  - PAIN [None]
  - PULMONARY EMBOLISM [None]
  - SCHIZOPHRENIA [None]
  - SOCIAL AVOIDANT BEHAVIOUR [None]
  - SURGERY [None]
  - UPPER LIMB FRACTURE [None]
  - UTERINE CANCER [None]
  - VENTRICULAR FIBRILLATION [None]
  - VOMITING [None]
